FAERS Safety Report 19683862 (Version 2)
Quarter: 2021Q3

REPORT INFORMATION
  Report Type: Spontaneous
  Country: US (occurrence: US)
  Receive Date: 20210811
  Receipt Date: 20210830
  Transmission Date: 20211014
  Serious: No
  Sender: FDA-Public Use
  Company Number: US-TEVA-2021-US-1934504

PATIENT
  Age: 62 Year
  Sex: Male

DRUGS (3)
  1. CLONAZEPAM. [Suspect]
     Active Substance: CLONAZEPAM
     Indication: ANXIETY
     Dosage: TAKES 0.5 MG AT NIGHT AND SPLITS THE TABLETS DURING THE DAY
     Route: 065
  2. CLONAZEPAM. [Suspect]
     Active Substance: CLONAZEPAM
     Indication: DIZZINESS
  3. LAMOTRIGINE. [Concomitant]
     Active Substance: LAMOTRIGINE
     Route: 065

REACTIONS (5)
  - Wrong technique in product usage process [Unknown]
  - Depression [Unknown]
  - Anxiety [Unknown]
  - Product use in unapproved indication [Unknown]
  - Drug ineffective [Unknown]

NARRATIVE: CASE EVENT DATE: 2021
